FAERS Safety Report 7978753-5 (Version None)
Quarter: 2011Q4

REPORT INFORMATION
  Report Type: 
  Country: None (occurrence: None)
  Receive Date: 20111214
  Receipt Date: 20111212
  Transmission Date: 20120403
  Serious: Yes (Congenital Anomaly)
  Sender: FDA-Public Use
  Company Number: AU-PFIZER INC-2011302587

PATIENT
  Sex: Male

DRUGS (1)
  1. DOSTINEX [Suspect]
     Indication: IN VITRO FERTILISATION
     Route: 064

REACTIONS (2)
  - MATERNAL EXPOSURE TIMING UNSPECIFIED [None]
  - CLEFT PALATE [None]
